FAERS Safety Report 8112492-5 (Version None)
Quarter: 2012Q1

REPORT INFORMATION
  Report Type: 
  Country: None (occurrence: None)
  Receive Date: 20120203
  Receipt Date: 20120124
  Transmission Date: 20120608
  Serious: Yes (Hospitalization, Other)
  Sender: FDA-Public Use
  Company Number: CA-JNJFOC-20120111458

PATIENT
  Sex: Male
  Weight: 81.65 kg

DRUGS (2)
  1. PARKINSON'S MEDS [Concomitant]
  2. STELARA [Suspect]
     Indication: PSORIASIS

REACTIONS (2)
  - DEMENTIA [None]
  - PARKINSON'S DISEASE [None]
